FAERS Safety Report 10219494 (Version 1)
Quarter: 2014Q2

REPORT INFORMATION
  Report Type: Spontaneous
  Country: US (occurrence: None)
  Receive Date: 20140604
  Receipt Date: 20140604
  Transmission Date: 20141212
  Serious: No
  Sender: FDA-Public Use
  Company Number: None

PATIENT
  Age: 6 Month
  Sex: Male
  Weight: 107.96 kg

DRUGS (7)
  1. TRAZODONE [Suspect]
     Indication: SLEEP DISORDER
     Dosage: 1 QHS/BEDTIME ORAL
     Route: 048
  2. DEPAKOTE [Concomitant]
  3. RISPERDAL [Concomitant]
  4. TUMS [Concomitant]
  5. IBUPROFEN [Concomitant]
  6. OXYCODONE [Concomitant]
  7. OMEPRAZOLE [Concomitant]

REACTIONS (3)
  - Priapism [None]
  - Penile oedema [None]
  - No therapeutic response [None]
